FAERS Safety Report 4980896-5 (Version None)
Quarter: 2006Q2

REPORT INFORMATION
  Report Type: 
  Country: None (occurrence: None)
  Receive Date: 20060424
  Receipt Date: 20060202
  Transmission Date: 20061013
  Serious: Yes (Other)
  Sender: FDA-Public Use
  Company Number: US-MERCK-0602USA01579

PATIENT
  Age: 53 Year
  Sex: Female
  Weight: 68 kg

DRUGS (6)
  1. VIOXX [Suspect]
     Indication: PAIN
     Route: 048
     Dates: start: 19991124, end: 20020601
  2. VIOXX [Suspect]
     Route: 048
     Dates: start: 19991124, end: 20020601
  3. VIOXX [Suspect]
     Indication: FIBROMYALGIA
     Route: 048
     Dates: start: 19991124, end: 20020601
  4. VIOXX [Suspect]
     Route: 048
     Dates: start: 19991124, end: 20020601
  5. ASPIRIN [Concomitant]
     Route: 065
  6. TYLENOL (CAPLET) [Concomitant]
     Route: 065

REACTIONS (1)
  - ISCHAEMIC STROKE [None]
